FAERS Safety Report 16025435 (Version 2)
Quarter: 2019Q1

REPORT INFORMATION
  Report Type: Report from Study
  Country: DE (occurrence: DE)
  Receive Date: 20190301
  Receipt Date: 20190321
  Transmission Date: 20190418
  Serious: Yes (Death, Hospitalization, Other)
  Sender: FDA-Public Use
  Company Number: DE-ACTELION-A-NJ2019-187104

PATIENT
  Age: 83 Year
  Sex: Male

DRUGS (2)
  1. VENTAVIS [Suspect]
     Active Substance: ILOPROST
     Indication: PULMONARY ARTERIAL HYPERTENSION
     Dosage: UNK, 6ID
     Route: 055
     Dates: start: 20140730, end: 20190215
  2. ILOPROST. [Concomitant]
     Active Substance: ILOPROST
     Dosage: UNK
     Dates: start: 20190215

REACTIONS (3)
  - Death [Fatal]
  - Iron deficiency anaemia [Recovering/Resolving]
  - General physical health deterioration [Fatal]

NARRATIVE: CASE EVENT DATE: 20190311
